FAERS Safety Report 23336092 (Version 1)
Quarter: 2023Q4

REPORT INFORMATION
  Report Type: Report from Study
  Country: US (occurrence: US)
  Receive Date: 20231225
  Receipt Date: 20231225
  Transmission Date: 20240110
  Serious: Yes (Other)
  Sender: FDA-Public Use
  Company Number: US-UCBSA-2023004260

PATIENT
  Age: 51 Year
  Sex: Female

DRUGS (5)
  1. CERTOLIZUMAB PEGOL [Suspect]
     Active Substance: CERTOLIZUMAB PEGOL
     Indication: Ankylosing spondylitis
     Dosage: 400 MILLIGRAM, EV 4 WEEKS
     Route: 058
     Dates: start: 2020, end: 2022
  2. CERTOLIZUMAB PEGOL [Suspect]
     Active Substance: CERTOLIZUMAB PEGOL
     Dosage: 400 MILLIGRAM, EV 4 WEEKS
     Route: 058
     Dates: start: 20220902, end: 20230105
  3. CERTOLIZUMAB PEGOL [Suspect]
     Active Substance: CERTOLIZUMAB PEGOL
     Dosage: 1 BIWEEKLY
     Route: 058
  4. CERTOLIZUMAB PEGOL [Suspect]
     Active Substance: CERTOLIZUMAB PEGOL
     Dosage: 200 MILLIGRAM, EV 2 WEEKS(QOW)
     Route: 058
     Dates: start: 20230124, end: 202307
  5. ZITHROMAX [Concomitant]
     Active Substance: AZITHROMYCIN DIHYDRATE
     Indication: Oropharyngeal pain
     Dosage: UNK

REACTIONS (14)
  - Intervertebral disc degeneration [Recovering/Resolving]
  - Intervertebral disc operation [Recovered/Resolved]
  - Spinal operation [Recovered/Resolved]
  - Cataract [Unknown]
  - Cataract operation [Unknown]
  - Nail operation [Recovering/Resolving]
  - Ingrowing nail [Recovered/Resolved]
  - Pain [Unknown]
  - SARS-CoV-2 test positive [Unknown]
  - Oropharyngeal pain [Unknown]
  - Brain fog [Unknown]
  - Memory impairment [Unknown]
  - Bronchitis [Recovered/Resolved]
  - General physical health deterioration [Unknown]

NARRATIVE: CASE EVENT DATE: 20220701
